FAERS Safety Report 10584185 (Version 1)
Quarter: 2014Q4

REPORT INFORMATION
  Report Type: Spontaneous
  Country: CA (occurrence: None)
  Receive Date: 20141113
  Receipt Date: 20141113
  Transmission Date: 20150529
  Serious: Yes (Other)
  Sender: FDA-Public Use
  Company Number: None

PATIENT
  Age: 44 Year
  Sex: Female
  Weight: 79.38 kg

DRUGS (1)
  1. LATUDA [Suspect]
     Active Substance: LURASIDONE HYDROCHLORIDE
     Indication: SLEEP DISORDER
     Dates: start: 20141010, end: 20141024

REACTIONS (4)
  - Paranoia [None]
  - Suicidal ideation [None]
  - Feeling abnormal [None]
  - Depression [None]

NARRATIVE: CASE EVENT DATE: 20141020
